FAERS Safety Report 6964228-9 (Version None)
Quarter: 2010Q3

REPORT INFORMATION
  Report Type: 
  Country: None (occurrence: None)
  Receive Date: 20100903
  Receipt Date: 20100826
  Transmission Date: 20110219
  Serious: Yes (Hospitalization)
  Sender: FDA-Public Use
  Company Number: US-BIOGENIDEC-2010BI029736

PATIENT
  Age: 82 Year
  Sex: Female

DRUGS (2)
  1. AVONEX [Suspect]
     Indication: MULTIPLE SCLEROSIS
     Route: 030
     Dates: start: 19980515
  2. PRUDOXIN [Concomitant]

REACTIONS (6)
  - ADVERSE DRUG REACTION [None]
  - ASTHENIA [None]
  - DEPRESSED MOOD [None]
  - LOSS OF CONTROL OF LEGS [None]
  - MALAISE [None]
  - MULTIPLE SCLEROSIS RELAPSE [None]
